FAERS Safety Report 25550227 (Version 1)
Quarter: 2025Q3

REPORT INFORMATION
  Report Type: Spontaneous
  Country: US (occurrence: US)
  Receive Date: 20250714
  Receipt Date: 20250714
  Transmission Date: 20251020
  Serious: Yes (Other)
  Sender: AMGEN
  Company Number: US-AMGEN-USASP2025132743

PATIENT

DRUGS (1)
  1. PREDNISONE [Suspect]
     Active Substance: PREDNISONE
     Indication: Hypereosinophilic syndrome
     Route: 065

REACTIONS (8)
  - Prostate cancer [Unknown]
  - Basal cell carcinoma [Unknown]
  - Squamous cell carcinoma of skin [Unknown]
  - Rectal abscess [Unknown]
  - Hypereosinophilic syndrome [Unknown]
  - Inguinal hernia [Unknown]
  - Injection site reaction [Unknown]
  - Off label use [Unknown]
